FAERS Safety Report 18901197 (Version 1)
Quarter: 2021Q1

REPORT INFORMATION
  Report Type: Report from Study
  Country: PH (occurrence: PH)
  Receive Date: 20210216
  Receipt Date: 20210216
  Transmission Date: 20210420
  Serious: Yes (Other)
  Sender: FDA-Public Use
  Company Number: PH-ASTRAZENECA-2021A044622

PATIENT
  Sex: Male

DRUGS (2)
  1. IRESSA [Suspect]
     Active Substance: GEFITINIB
     Indication: LUNG NEOPLASM MALIGNANT
     Dosage: 250.0MG UNKNOWN
     Route: 048
  2. TAGRISSO [Concomitant]
     Active Substance: OSIMERTINIB

REACTIONS (3)
  - Asthenia [Unknown]
  - Malignant neoplasm progression [Unknown]
  - Drug ineffective [Unknown]
